FAERS Safety Report 10108764 (Version 3)
Quarter: 2014Q2

REPORT INFORMATION
  Report Type: Spontaneous
  Country: US (occurrence: US)
  Receive Date: 20140425
  Receipt Date: 20140428
  Transmission Date: 20141212
  Serious: Yes (Other)
  Sender: FDA-Public Use
  Company Number: US-BEH-2013038606

PATIENT
  Age: 47 Year
  Sex: Male
  Weight: 76 kg

DRUGS (3)
  1. ZEMAIRA [Suspect]
  2. STEROIDS [Concomitant]
  3. INHALERS [Concomitant]

REACTIONS (8)
  - Intestinal perforation [Recovered/Resolved]
  - Abdominal abscess [Recovered/Resolved]
  - Abdominal hernia [Recovered/Resolved]
  - Sinusitis [Not Recovered/Not Resolved]
  - Insomnia [Recovering/Resolving]
  - Cataract [Recovered/Resolved]
  - Respiratory tract infection fungal [Unknown]
  - Bronchospasm [Unknown]
